FAERS Safety Report 18636090 (Version 6)
Quarter: 2020Q4

REPORT INFORMATION
  Report Type: Spontaneous
  Country: US (occurrence: US)
  Receive Date: 20201218
  Receipt Date: 20201230
  Transmission Date: 20210114
  Serious: Yes (Death, Hospitalization, Other)
  Sender: FDA-Public Use
  Company Number: US-UNITED THERAPEUTICS-UNT-2020-019236

PATIENT
  Age: 75 Year
  Sex: Female
  Weight: 57.32 kg

DRUGS (3)
  1. SILDENAFIL CITRATE. [Concomitant]
     Active Substance: SILDENAFIL CITRATE
     Indication: PRODUCT USED FOR UNKNOWN INDICATION
     Dosage: UNK
     Route: 065
  2. REMODULIN [Suspect]
     Active Substance: TREPROSTINIL
     Indication: PULMONARY ARTERIAL HYPERTENSION
     Dosage: UNK UNK, CONTINUING
     Route: 041
     Dates: start: 20201130
  3. REMODULIN [Suspect]
     Active Substance: TREPROSTINIL
     Dosage: 0.013 ?G/KG, CONTINUING
     Route: 041
     Dates: start: 2020

REACTIONS (8)
  - Oxygen saturation decreased [Unknown]
  - Dyspnoea [Unknown]
  - Dry mouth [Unknown]
  - Dizziness [Unknown]
  - Product preparation error [Unknown]
  - COVID-19 pneumonia [Fatal]
  - Fatigue [Unknown]
  - Dry throat [Unknown]

NARRATIVE: CASE EVENT DATE: 2020
